FAERS Safety Report 5631367-4 (Version None)
Quarter: 2008Q1

REPORT INFORMATION
  Report Type: 
  Country: None (occurrence: None)
  Receive Date: 20080212
  Receipt Date: 20080128
  Transmission Date: 20080703
  Serious: Yes (Other)
  Sender: FDA-Public Use
  Company Number: 2007S1013565

PATIENT
  Age: 42 Year
  Sex: Female
  Weight: 92.9874 kg

DRUGS (2)
  1. CYCLOBENZAPRINE HYDROCHLORIDE [Suspect]
     Indication: MUSCLE SPASMS
     Dosage: 10 MG; AS NEEDED; ORAL
     Route: 048
     Dates: start: 20071001, end: 20071212
  2. CYCLOBENZAPRINE HYDROCHLORIDE [Suspect]
     Indication: SPINAL OSTEOARTHRITIS
     Dosage: 10 MG; AS NEEDED; ORAL
     Route: 048
     Dates: start: 20071001, end: 20071212

REACTIONS (1)
  - FACIAL PALSY [None]
